FAERS Safety Report 15349827 (Version 2)
Quarter: 2019Q2

REPORT INFORMATION
  Report Type: Spontaneous
  Country: ES (occurrence: ES)
  Receive Date: 20180904
  Receipt Date: 20190510
  Transmission Date: 20190711
  Serious: Yes (Other)
  Sender: FDA-Public Use
  Company Number: PHHY2018ES087692

PATIENT
  Age: 13 Year
  Sex: Male

DRUGS (3)
  1. IBUPROFEN. [Suspect]
     Active Substance: IBUPROFEN
     Indication: PHARYNGITIS
     Route: 065
  2. IBUPROFEN. [Suspect]
     Active Substance: IBUPROFEN
     Indication: RESPIRATORY TRACT INFECTION
  3. IBUPROFEN. [Suspect]
     Active Substance: IBUPROFEN
     Indication: PYREXIA

REACTIONS (3)
  - Angioedema [Unknown]
  - Product use in unapproved indication [Unknown]
  - Drug hypersensitivity [Unknown]
